FAERS Safety Report 9030632 (Version 2)
Quarter: 2013Q3

REPORT INFORMATION
  Report Type: Spontaneous
  Country: JP (occurrence: JP)
  Receive Date: 20130123
  Receipt Date: 20130801
  Transmission Date: 20140515
  Serious: Yes (Other)
  Sender: FDA-Public Use
  Company Number: JP-VERTEX PHARMACEUTICALS INC.-2013-000928

PATIENT
  Age: 60 Year
  Sex: Male

DRUGS (5)
  1. TELAVIC [Suspect]
     Indication: HEPATITIS C
     Dosage: 1500 MG, QD
     Route: 048
     Dates: start: 20120420, end: 20120713
  2. REBETOL [Suspect]
     Indication: HEPATITIS C
     Dosage: 800 MG, QD
     Route: 048
     Dates: start: 20120420, end: 20120928
  3. PEGINTRON [Suspect]
     Indication: HEPATITIS C
     Dosage: 1.5 ?G/KG/ WEEK
     Route: 058
     Dates: start: 20120420, end: 20120809
  4. PEGINTRON [Suspect]
     Dosage: 1.2 ?G/KG/WEEK
     Route: 058
     Dates: start: 20120810, end: 20120928
  5. URSO [Concomitant]
     Dosage: 200 MG, QD
     Route: 048

REACTIONS (6)
  - White blood cell count decreased [Recovered/Resolved]
  - Pyrexia [Recovered/Resolved]
  - Pyrexia [Recovered/Resolved]
  - Toxic skin eruption [Recovered/Resolved]
  - Hyperuricaemia [Recovered/Resolved]
  - Hyperuricaemia [Recovered/Resolved]
